FAERS Safety Report 9270651 (Version 1)
Quarter: 2013Q2

REPORT INFORMATION
  Report Type: Spontaneous
  Country: DE (occurrence: DE)
  Receive Date: 20130505
  Receipt Date: 20130505
  Transmission Date: 20140414
  Serious: Yes (Other)
  Sender: FDA-Public Use
  Company Number: GXKR2013DE001706

PATIENT
  Sex: Male

DRUGS (1)
  1. METFORMIN 1A PHARMA [Suspect]
     Dosage: 850 MG, UNK
     Route: 048

REACTIONS (1)
  - Pancreatitis [Unknown]
